FAERS Safety Report 10392948 (Version 2)
Quarter: 2014Q3

REPORT INFORMATION
  Report Type: Report from Study
  Country: US (occurrence: None)
  Receive Date: 20140815
  Receipt Date: 20140822
  Transmission Date: 20150326
  Serious: Yes (Hospitalization)
  Sender: FDA-Public Use
  Company Number: 2014SGN00956

PATIENT
  Age: 63 Year
  Sex: Male
  Weight: 59.4 kg

DRUGS (4)
  1. DACARBAZINE (DACARBAZINE) INJECTION [Suspect]
     Active Substance: DACARBAZINE
     Indication: HODGKIN^S DISEASE
     Route: 042
     Dates: start: 20140722, end: 20140722
  2. DOXORUBICIN (DOXORUBICIN) INJECTION [Suspect]
     Active Substance: DOXORUBICIN
     Indication: HODGKIN^S DISEASE
     Dates: start: 20140722, end: 20140722
  3. BRENTUXIMAB VEDOTIN (BRENTUXIMAB VEDOTIN) INJECTION [Suspect]
     Active Substance: BRENTUXIMAB VEDOTIN
     Indication: HODGKIN^S DISEASE
     Route: 042
     Dates: start: 20140610, end: 20140701
  4. VINBLASTINE (VINBLASTINE SULFATE) INJECTION [Suspect]
     Active Substance: VINBLASTINE
     Indication: HODGKIN^S DISEASE
     Route: 042
     Dates: start: 20140722, end: 20140722

REACTIONS (10)
  - Diarrhoea [None]
  - Nausea [None]
  - Hypovolaemia [None]
  - Pyrexia [None]
  - Hyponatraemia [None]
  - Constipation [None]
  - Abdominal pain [None]
  - Neutropenia [None]
  - Fatigue [None]
  - Vomiting [None]

NARRATIVE: CASE EVENT DATE: 20140730
